FAERS Safety Report 25029654 (Version 1)
Quarter: 2025Q1

REPORT INFORMATION
  Report Type: Spontaneous
  Country: CN (occurrence: CN)
  Receive Date: 20250303
  Receipt Date: 20250303
  Transmission Date: 20250408
  Serious: Yes (Hospitalization, Other)
  Sender: RK PHARMA
  Company Number: CN-RK PHARMA, INC-20250200026

PATIENT

DRUGS (2)
  1. CARBAMAZEPINE [Interacting]
     Active Substance: CARBAMAZEPINE
     Indication: Epilepsy
     Route: 065
     Dates: start: 2024, end: 20240428
  2. BOTOX [Interacting]
     Active Substance: ONABOTULINUMTOXINA
     Indication: Bruxism
     Route: 065
     Dates: start: 20240422

REACTIONS (2)
  - Drug interaction [Recovered/Resolved]
  - Stevens-Johnson syndrome [Recovered/Resolved]

NARRATIVE: CASE EVENT DATE: 20240101
